FAERS Safety Report 4354714-2 (Version None)
Quarter: 2004Q2

REPORT INFORMATION
  Report Type: 
  Country: None (occurrence: None)
  Receive Date: 20040503
  Receipt Date: 20040419
  Transmission Date: 20050107
  Serious: Yes (Hospitalization)
  Sender: FDA-Public Use
  Company Number: 2004-115337-NL

PATIENT
  Age: 42 Year
  Sex: Female

DRUGS (2)
  1. ORGALUTRAN [Suspect]
     Indication: INFERTILITY
     Dates: start: 20040415
  2. SEVERAL FERTILITY MEDICAITONS (UNSPECIFIED) [Concomitant]

REACTIONS (2)
  - HYPERSENSITIVITY [None]
  - SWELLING FACE [None]
